FAERS Safety Report 8346972-4 (Version None)
Quarter: 2012Q2

REPORT INFORMATION
  Report Type: 
  Country: None (occurrence: None)
  Receive Date: 20120509
  Receipt Date: 20120430
  Transmission Date: 20120825
  Serious: Yes (Other)
  Sender: FDA-Public Use
  Company Number: IE-ASTRAZENECA-2011SE41490

PATIENT
  Sex: Female
  Weight: 54.4 kg

DRUGS (6)
  1. COVERYL PLUS [Concomitant]
     Dosage: 10/2.5
  2. CRESTOR [Suspect]
     Indication: HYPERLIPIDAEMIA
     Route: 048
     Dates: start: 20110411, end: 20110625
  3. EMAZOLE [Concomitant]
  4. VALIUM [Concomitant]
  5. STILNACT [Concomitant]
  6. LEXAPRO [Concomitant]

REACTIONS (6)
  - MYALGIA [None]
  - DEPRESSION [None]
  - MUSCLE SPASMS [None]
  - SUICIDAL BEHAVIOUR [None]
  - PAIN IN EXTREMITY [None]
  - ARTHRALGIA [None]
